FAERS Safety Report 7096855-5 (Version None)
Quarter: 2010Q4

REPORT INFORMATION
  Report Type: 
  Country: None (occurrence: None)
  Receive Date: 20101111
  Receipt Date: 20101101
  Transmission Date: 20110411
  Serious: Yes (Hospitalization)
  Sender: FDA-Public Use
  Company Number: IE-ROCHE-738245

PATIENT
  Sex: Male

DRUGS (3)
  1. MIRCERA [Suspect]
     Dosage: FREQUENCY: FORTNIGHTLY
     Route: 065
     Dates: start: 20100101
  2. MIRCERA [Suspect]
     Route: 065
  3. MIRCERA [Suspect]
     Route: 065
     Dates: end: 20101004

REACTIONS (1)
  - TRANSIENT ISCHAEMIC ATTACK [None]
